FAERS Safety Report 9985638 (Version 2)
Quarter: 2014Q1

REPORT INFORMATION
  Report Type: Spontaneous
  Country: HK (occurrence: HK)
  Receive Date: 20140307
  Receipt Date: 20140314
  Transmission Date: 20141002
  Serious: Yes (Hospitalization)
  Sender: FDA-Public Use
  Company Number: HK-PFIZER INC-2014066430

PATIENT
  Age: 64 Year
  Sex: Male

DRUGS (9)
  1. RAPAMUNE [Suspect]
     Indication: IMMUNOSUPPRESSANT DRUG THERAPY
     Dosage: 1 MG, DAILY
  2. IBUPROFEN [Suspect]
     Indication: MYALGIA
     Dosage: 2 TABLETS, UNK
  3. NEORAL [Interacting]
     Indication: IMMUNOSUPPRESSANT DRUG THERAPY
     Dosage: 30 MG BD (1 MG/KG/DAY)
  4. PREDNISOLONE [Concomitant]
     Indication: IMMUNOSUPPRESSANT DRUG THERAPY
  5. VALSARTAN [Concomitant]
  6. DILTIAZEM [Concomitant]
  7. FAMOTIDINE [Concomitant]
  8. GLICLAZIDE [Concomitant]
  9. ASPIRIN [Concomitant]
     Indication: MYOCARDIAL ISCHAEMIA

REACTIONS (3)
  - Drug interaction [Recovering/Resolving]
  - Toxicity to various agents [Recovering/Resolving]
  - Renal failure acute [Recovering/Resolving]
